FAERS Safety Report 4881515-9 (Version None)
Quarter: 2006Q1

REPORT INFORMATION
  Report Type: 
  Country: None (occurrence: None)
  Receive Date: 20060116
  Receipt Date: 20060111
  Transmission Date: 20060701
  Serious: Yes (Other)
  Sender: FDA-Public Use
  Company Number: US-GLAXOSMITHKLINE-A0588805A

PATIENT
  Age: 40 Year
  Sex: Female

DRUGS (6)
  1. PARNATE [Suspect]
     Indication: DEPRESSION
     Dosage: 10MG TWICE PER DAY
     Route: 048
     Dates: start: 20051101
  2. SPIRONOLACTONE [Concomitant]
  3. LAMICTAL [Concomitant]
  4. ABILIFY [Concomitant]
  5. XANAX [Concomitant]
  6. ESTRADIOL;NORGESTIMATE [Concomitant]

REACTIONS (3)
  - FACIAL PALSY [None]
  - SOMNOLENCE [None]
  - WEIGHT DECREASED [None]
